FAERS Safety Report 10381956 (Version 2)
Quarter: 2014Q3

REPORT INFORMATION
  Report Type: Report from Study
  Country: HU (occurrence: HU)
  Receive Date: 20140813
  Receipt Date: 20140822
  Transmission Date: 20150326
  Serious: Yes (Hospitalization)
  Sender: FDA-Public Use
  Company Number: HU-BRISTOL-MYERS SQUIBB COMPANY-21294079

PATIENT
  Age: 13 Year
  Sex: Male

DRUGS (1)
  1. ARIPIPRAZOLE [Suspect]
     Active Substance: ARIPIPRAZOLE
     Indication: TOURETTE^S DISORDER
     Dosage: TAB
     Route: 048
     Dates: start: 20130730

REACTIONS (1)
  - Tourette^s disorder [Recovered/Resolved]

NARRATIVE: CASE EVENT DATE: 20140805
